FAERS Safety Report 6280034-5 (Version None)
Quarter: 2009Q3

REPORT INFORMATION
  Report Type: 
  Country: None (occurrence: None)
  Receive Date: 20090723
  Receipt Date: 20090713
  Transmission Date: 20100115
  Serious: Yes (Hospitalization, Other)
  Sender: FDA-Public Use
  Company Number: US-PFIZER INC-2009241301

PATIENT
  Sex: Female
  Weight: 79.832 kg

DRUGS (8)
  1. LIPITOR [Suspect]
     Indication: BLOOD CHOLESTEROL INCREASED
     Dates: end: 20090101
  2. LIPITOR [Suspect]
     Indication: BLOOD TRIGLYCERIDES INCREASED
  3. GABAPENTIN [Concomitant]
  4. ESOMEPRAZOLE MAGNESIUM [Concomitant]
  5. GLIPIZIDE [Concomitant]
  6. ISOSORBIDE MONONITRATE [Concomitant]
  7. ENALAPRIL MALEATE [Concomitant]
  8. ACETAMINOPHEN AND HYDROCODONE BITARTRATE [Concomitant]

REACTIONS (7)
  - ARTERIAL STENOSIS [None]
  - HEADACHE [None]
  - HERPES ZOSTER [None]
  - HYPERTENSION [None]
  - PANIC ATTACK [None]
  - SURGERY [None]
  - TYPE 2 DIABETES MELLITUS [None]
